FAERS Safety Report 19890808 (Version 9)
Quarter: 2022Q3

REPORT INFORMATION
  Report Type: Report from Study
  Country: FR (occurrence: FR)
  Receive Date: 20210927
  Receipt Date: 20220913
  Transmission Date: 20221027
  Serious: Yes (Death, Hospitalization, Other)
  Sender: FDA-Public Use
  Company Number: FR-GILEAD-2021-0547569

PATIENT
  Age: 72 Year
  Sex: Male
  Weight: 62 kg

DRUGS (33)
  1. AXICABTAGENE CILOLEUCEL [Suspect]
     Active Substance: AXICABTAGENE CILOLEUCEL
     Indication: B-cell lymphoma
     Dosage: 2.10*6 CELLS/KG, ONCE
     Route: 042
     Dates: start: 20210820, end: 20210820
  2. FLUDARABINE [Concomitant]
     Active Substance: FLUDARABINE PHOSPHATE
     Indication: Bone marrow conditioning regimen
     Dosage: 30 MG/M2/DAY, 150 MG TOTAL DOSE FROM 12-AUG-2021 TO 14-AUG-2021
     Dates: start: 20210812, end: 20210814
  3. CYCLOPHOSPHAMIDE [Concomitant]
     Active Substance: CYCLOPHOSPHAMIDE
     Indication: Bone marrow conditioning regimen
     Dosage: 500 MG/M2/DAY, 2400 MG TOTAL DOSE FROM 12-AUG-2021 TO 14-AUG-2021
     Dates: start: 20210812, end: 20210814
  4. GRANULOCYTE COLONY-STIMULATING FACTOR NOS [Concomitant]
     Active Substance: GRANULOCYTE COLONY-STIMULATING FACTOR NOS
     Dosage: UNK
  5. HUMAN RED BLOOD CELL [Concomitant]
     Active Substance: HUMAN RED BLOOD CELL
     Dosage: 11 UNITS
  6. METFORMIN HYDROCHLORIDE [Concomitant]
     Active Substance: METFORMIN HYDROCHLORIDE
     Indication: Type 2 diabetes mellitus
     Dosage: UNK
     Dates: end: 20210820
  7. AMLODIPINE [Concomitant]
     Active Substance: AMLODIPINE BESYLATE
     Indication: Hypertension
     Dosage: UNK
     Dates: end: 20210831
  8. ROSUVASTATIN [Concomitant]
     Active Substance: ROSUVASTATIN
     Indication: Dyslipidaemia
     Dosage: UNK
     Dates: start: 20210809
  9. ROSUVASTATIN [Concomitant]
     Active Substance: ROSUVASTATIN
     Dosage: UNK
     Dates: start: 20210812, end: 20210830
  10. ACETAMINOPHEN [Concomitant]
     Active Substance: ACETAMINOPHEN
     Indication: Back pain
     Dosage: UNK
     Dates: start: 20210728, end: 20210728
  11. ACETAMINOPHEN [Concomitant]
     Active Substance: ACETAMINOPHEN
     Indication: Cytokine release syndrome
     Dosage: UNK
     Dates: start: 20210822, end: 20210827
  12. ALLOPURINOL [Concomitant]
     Active Substance: ALLOPURINOL
     Dosage: UNK
     Dates: end: 20210816
  13. RETINOL [Concomitant]
     Active Substance: RETINOL
     Indication: Facial paralysis
     Dosage: UNK
     Dates: start: 20210713
  14. VALACYCLOVIR HYDROCHLORIDE [Concomitant]
     Active Substance: VALACYCLOVIR HYDROCHLORIDE
     Indication: Hepatitis C
     Dosage: UNK
     Dates: start: 20210311, end: 20210814
  15. VALACYCLOVIR HYDROCHLORIDE [Concomitant]
     Active Substance: VALACYCLOVIR HYDROCHLORIDE
     Dosage: UNK
     Dates: start: 20210828, end: 20210830
  16. BACTRIM [Concomitant]
     Active Substance: SULFAMETHOXAZOLE\TRIMETHOPRIM
     Dosage: UNK
     Dates: start: 20210311, end: 20210830
  17. PANTOPRAZOLE [Concomitant]
     Active Substance: PANTOPRAZOLE
     Indication: Gastrooesophageal reflux disease
     Dosage: UNK
     Dates: start: 20210422, end: 20210912
  18. TRAMADOL HYDROCHLORIDE [Concomitant]
     Active Substance: TRAMADOL HYDROCHLORIDE
     Indication: Lymphoma
     Dosage: UNK
     Dates: start: 20210813, end: 20210828
  19. LEUCOVORIN CALCIUM [Concomitant]
     Active Substance: LEUCOVORIN CALCIUM
     Dosage: UNK
     Dates: start: 20210311, end: 20210829
  20. RASBURICASE [Concomitant]
     Active Substance: RASBURICASE
     Dosage: UNK
     Dates: start: 20210811, end: 20210817
  21. ALBUMIN HUMAN [Concomitant]
     Active Substance: ALBUMIN HUMAN
     Indication: Lymphoma
     Dosage: UNK
     Dates: start: 20210815, end: 20210819
  22. CALCIUM CARBONATE\SODIUM ALGINATE [Concomitant]
     Active Substance: CALCIUM CARBONATE\SODIUM ALGINATE
     Dosage: UNK
     Dates: start: 20210812, end: 20210818
  23. ZOLPIDEM TARTRATE [Concomitant]
     Active Substance: ZOLPIDEM TARTRATE
     Indication: Insomnia
     Dosage: UNK
     Dates: start: 20210809, end: 20210827
  24. MONTMORILLONITE [Concomitant]
     Active Substance: MONTMORILLONITE
     Indication: Lymphoma
     Dosage: UNK
     Dates: start: 20210810, end: 20210831
  25. RACECADOTRIL [Concomitant]
     Active Substance: RACECADOTRIL
     Indication: Lymphoma
     Dosage: UNK
     Dates: start: 20210810, end: 20210831
  26. AMOXICILLIN [Concomitant]
     Active Substance: AMOXICILLIN
     Dosage: UNK
     Dates: start: 20210810, end: 20210817
  27. TITANOREINE [CHONDRUS CRISPUS;TITANIUM DIOXIDE;ZINC OXIDE] [Concomitant]
     Indication: Haemorrhoids
     Dosage: UNK
     Dates: start: 20210813, end: 20210828
  28. SEVELAMER CARBONATE [Concomitant]
     Active Substance: SEVELAMER CARBONATE
     Indication: Hyperphosphataemia
     Dosage: UNK
     Dates: start: 20210814, end: 20210823
  29. POTASSIUM CHLORIDE [Concomitant]
     Active Substance: POTASSIUM CHLORIDE
     Indication: Hypokalaemia
     Dosage: UNK
     Dates: start: 20210814
  30. ALFUZOSIN HYDROCHLORIDE [Concomitant]
     Active Substance: ALFUZOSIN HYDROCHLORIDE
     Indication: Lymphoma
     Dosage: UNK
     Dates: start: 20210816, end: 20210830
  31. FUROSEMIDE [Concomitant]
     Active Substance: FUROSEMIDE
     Indication: Lymphoma
     Dosage: UNK
     Dates: start: 20210814, end: 20210823
  32. SODIUM BICARBONATE [Concomitant]
     Active Substance: SODIUM BICARBONATE
     Indication: Lymphoma
     Dosage: UNK
     Dates: start: 20210817, end: 20210823
  33. OXYBUTYNINE [OXYBUTYNIN HYDROCHLORIDE] [Concomitant]
     Dosage: UNK
     Dates: start: 20210818, end: 20210928

REACTIONS (4)
  - Perineal infection [Fatal]
  - Bone marrow failure [Not Recovered/Not Resolved]
  - Immune effector cell-associated neurotoxicity syndrome [Not Recovered/Not Resolved]
  - Cytokine release syndrome [Unknown]

NARRATIVE: CASE EVENT DATE: 20210831
